FAERS Safety Report 15017817 (Version 3)
Quarter: 2018Q3

REPORT INFORMATION
  Report Type: Spontaneous
  Country: US (occurrence: US)
  Receive Date: 20180615
  Receipt Date: 20180814
  Transmission Date: 20181010
  Serious: Yes (Death, Hospitalization)
  Sender: FDA-Public Use
  Company Number: US-JNJFOC-20180612793

PATIENT
  Age: 51 Year
  Sex: Male
  Weight: 65 kg

DRUGS (11)
  1. MEGACE [Concomitant]
     Active Substance: MEGESTROL ACETATE
     Route: 065
  2. REMERON [Concomitant]
     Active Substance: MIRTAZAPINE
     Route: 065
  3. OXYCODONE [Concomitant]
     Active Substance: OXYCODONE
     Route: 065
  4. VITAMIN D [Concomitant]
     Active Substance: CHOLECALCIFEROL
     Route: 065
  5. VICKS DAYQUIL [Concomitant]
     Active Substance: DEXTROMETHORPHAN HYDROBROMIDE\GUAIFENESIN
     Route: 065
  6. SENOKOT [Concomitant]
     Active Substance: SENNOSIDES
     Route: 065
  7. ULTRAM [Concomitant]
     Active Substance: TRAMADOL HYDROCHLORIDE
     Route: 065
  8. YONDELIS [Suspect]
     Active Substance: TRABECTEDIN
     Indication: SARCOMA
     Dosage: 2.535 (UNSPECIFIED UNITS)
     Route: 042
     Dates: start: 20180521, end: 20180521
  9. ASCORBYL PALMITATE [Concomitant]
     Active Substance: ASCORBYL PALMITATE
     Route: 065
  10. LOMOTIL [Concomitant]
     Active Substance: ATROPINE SULFATE\DIPHENOXYLATE HYDROCHLORIDE
     Route: 065
  11. PROTONIX [Concomitant]
     Active Substance: PANTOPRAZOLE SODIUM
     Route: 065

REACTIONS (4)
  - Multiple organ dysfunction syndrome [Fatal]
  - Product quality issue [Unknown]
  - Respiratory failure [Fatal]
  - Cytopenia [Fatal]

NARRATIVE: CASE EVENT DATE: 201805
